FAERS Safety Report 7367140-9 (Version None)
Quarter: 2011Q1

REPORT INFORMATION
  Report Type: 
  Country: None (occurrence: None)
  Receive Date: 20110322
  Receipt Date: 20110315
  Transmission Date: 20110831
  Serious: Yes (Hospitalization)
  Sender: FDA-Public Use
  Company Number: PH-PFIZER INC-2011056988

PATIENT
  Age: 73 Year
  Sex: Female

DRUGS (13)
  1. ACETAMINOPHEN [Concomitant]
     Dosage: 12 MG, UNK
     Dates: start: 20101005
  2. MAGNESIUM [Suspect]
     Dosage: UNK
     Dates: start: 20101005
  3. GLUCOSE [Concomitant]
     Dosage: UNK
     Dates: start: 20101005
  4. LOSARTAN POTASSIUM [Concomitant]
     Dosage: UNK
     Dates: start: 20100928
  5. CAL MAG [Concomitant]
     Dosage: UNK
     Dates: start: 20100928
  6. BLINDED THERAPY [Suspect]
     Indication: THROMBOSIS PROPHYLAXIS
     Dosage: UNK
     Dates: start: 20100925, end: 20101026
  7. AMLODIPINE [Concomitant]
     Dosage: UNK
     Dates: start: 20100928
  8. OMEPRAZOLE [Concomitant]
     Dosage: UNK
     Dates: start: 20101006
  9. HYDROCORTISONE [Concomitant]
     Dosage: UNK
     Route: 042
     Dates: start: 20101005
  10. KALIUM DURETTER [Concomitant]
     Dosage: UNK
     Dates: start: 20101006
  11. METHYLPREDNISOLONE [Suspect]
  12. CALCIUM GLUCONATE [Concomitant]
     Dosage: 12 MG, UNK
     Dates: start: 20101005
  13. POTASSIUM [Concomitant]
     Dosage: UNK
     Dates: start: 20101005

REACTIONS (2)
  - ILEUS [None]
  - HEMIPARESIS [None]
